FAERS Safety Report 11057954 (Version 1)
Quarter: 2015Q2

REPORT INFORMATION
  Report Type: Spontaneous
  Country: None (occurrence: None)
  Receive Date: 20150415
  Receipt Date: 20150415
  Transmission Date: 20150821
  Serious: Yes (Hospitalization, Other)
  Sender: FDA-Public Use
  Company Number: 003-263

PATIENT
  Age: 2 Year
  Sex: Male

DRUGS (1)
  1. UNKNOWN ANTIVENIN (50633-110-12) [Suspect]
     Active Substance: CROTALIDAE POLYVALENT IMMUNE FAB (OVINE)
     Indication: SNAKE BITE
     Dosage: 26 VIALS TOTAL
     Dates: start: 2015

REACTIONS (2)
  - Infection [None]
  - Soft tissue disorder [None]

NARRATIVE: CASE EVENT DATE: 2015
